FAERS Safety Report 10986186 (Version 2)
Quarter: 2015Q2

REPORT INFORMATION
  Report Type: Spontaneous
  Country: US (occurrence: US)
  Receive Date: 20150404
  Receipt Date: 20150525
  Transmission Date: 20150821
  Serious: No
  Sender: FDA-Public Use
  Company Number: US-JNJFOC-20130409276

PATIENT
  Sex: Male

DRUGS (2)
  1. IMODIUM A-D [Suspect]
     Active Substance: LOPERAMIDE HYDROCHLORIDE
     Indication: IRRITABLE BOWEL SYNDROME
     Route: 048
  2. IMODIUM A-D [Suspect]
     Active Substance: LOPERAMIDE HYDROCHLORIDE
     Route: 048

REACTIONS (8)
  - Wrong technique in drug usage process [Unknown]
  - Dyspnoea [Unknown]
  - Product use issue [Unknown]
  - Dysphagia [Unknown]
  - Oropharyngeal spasm [Unknown]
  - Foreign body [Unknown]
  - Cough [Unknown]
  - Drug ineffective [Unknown]
